FAERS Safety Report 6862944-0 (Version None)
Quarter: 2010Q3

REPORT INFORMATION
  Report Type: 
  Country: None (occurrence: None)
  Receive Date: 20100721
  Receipt Date: 20100720
  Transmission Date: 20110219
  Serious: Yes (Other)
  Sender: FDA-Public Use
  Company Number: A0871360A

PATIENT
  Age: 42 Year
  Sex: Male

DRUGS (1)
  1. ALLI [Suspect]
     Indication: WEIGHT LOSS DIET
     Route: 048
     Dates: end: 20100713

REACTIONS (4)
  - DYSURIA [None]
  - LIVER INJURY [None]
  - PAIN [None]
  - RENAL INJURY [None]
